FAERS Safety Report 9651441 (Version 2)
Quarter: 2013Q4

REPORT INFORMATION
  Report Type: Spontaneous
  Country: VE (occurrence: VE)
  Receive Date: 20131029
  Receipt Date: 20131104
  Transmission Date: 20140711
  Serious: Yes (Death, Hospitalization)
  Sender: FDA-Public Use
  Company Number: VE-UCBSA-101212

PATIENT
  Age: 6 Year
  Sex: Female

DRUGS (3)
  1. LEVETIRACETAM [Suspect]
     Indication: EPILEPSY
     Route: 048
     Dates: start: 20111017, end: 20131005
  2. VALPROATE ACID [Concomitant]
     Indication: EPILEPSY
  3. CLOBAZAM [Concomitant]
     Indication: EPILEPSY

REACTIONS (5)
  - Toxic epidermal necrolysis [Fatal]
  - Stevens-Johnson syndrome [Fatal]
  - Pneumonia streptococcal [Unknown]
  - Kawasaki^s disease [Unknown]
  - Product quality issue [Unknown]
